FAERS Safety Report 10290015 (Version 1)
Quarter: 2014Q3

REPORT INFORMATION
  Report Type: Spontaneous
  Country: US (occurrence: None)
  Receive Date: 20140707
  Receipt Date: 20140707
  Transmission Date: 20150326
  Serious: Yes (Hospitalization)
  Sender: FDA-Public Use
  Company Number: None

PATIENT
  Age: 53 Year
  Sex: Female
  Weight: 121 kg

DRUGS (2)
  1. CARBOPLATIN. [Suspect]
     Active Substance: CARBOPLATIN
  2. TAXOL [Suspect]
     Active Substance: PACLITAXEL

REACTIONS (8)
  - Vomiting [None]
  - Nausea [None]
  - Oesophagitis [None]
  - Haematemesis [None]
  - Dyspnoea [None]
  - Blood pressure increased [None]
  - Pain [None]
  - Dehydration [None]

NARRATIVE: CASE EVENT DATE: 20130506
